FAERS Safety Report 5323698-2 (Version None)
Quarter: 2007Q2

REPORT INFORMATION
  Report Type: 
  Country: None (occurrence: None)
  Receive Date: 20070222
  Receipt Date: 20061220
  Transmission Date: 20071010
  Serious: Yes (Other)
  Sender: FDA-Public Use
  Company Number: 2006156130

PATIENT
  Age: 64 Year
  Sex: Male
  Weight: 89.8 kg

DRUGS (8)
  1. EXUBERA [Suspect]
     Indication: DIABETES MELLITUS
     Dosage: 15 MG (5 MG, 3 IN 1 D), INHALATION
     Route: 055
     Dates: start: 20060101
  2. EXUBERA [Suspect]
  3. ACCUPRIL [Concomitant]
  4. ACTONEL [Concomitant]
  5. METFORMIN (METFORMIN) [Concomitant]
  6. FUROSEMIDE [Concomitant]
  7. CARTIA XT [Concomitant]
  8. LANTUS [Concomitant]

REACTIONS (1)
  - BLOOD GLUCOSE INCREASED [None]
